FAERS Safety Report 8955051 (Version 1)
Quarter: 2012Q4

REPORT INFORMATION
  Report Type: Spontaneous
  Country: GR (occurrence: None)
  Receive Date: 20121129
  Receipt Date: 20121129
  Transmission Date: 20130627
  Serious: Yes (Hospitalization)
  Sender: FDA-Public Use
  Company Number: B0847925A

PATIENT
  Age: 40 Year
  Sex: Female

DRUGS (3)
  1. PAZOPANIB [Suspect]
  2. FENTANYL [Concomitant]
  3. TRAMADOL HYDROCHLORIDE [Concomitant]

REACTIONS (6)
  - Posterior reversible encephalopathy syndrome [None]
  - Disease progression [None]
  - Hypertension [None]
  - Convulsion [None]
  - Diplopia [None]
  - Proteinuria [None]
